FAERS Safety Report 9287087 (Version 3)
Quarter: 2013Q3

REPORT INFORMATION
  Report Type: Spontaneous
  Country: US (occurrence: US)
  Receive Date: 20130513
  Receipt Date: 20130723
  Transmission Date: 20140515
  Serious: Yes (Hospitalization, Other)
  Sender: FDA-Public Use
  Company Number: US-B.I. PHARMACEUTICALS,INC./RIDGEFIELD-2013-BI-13194BP

PATIENT
  Age: 79 Year
  Sex: Female
  Weight: 95.25 kg

DRUGS (9)
  1. PRADAXA [Suspect]
     Indication: ANTICOAGULANT THERAPY
     Dates: start: 20111223, end: 20120525
  2. PRADAXA [Suspect]
     Indication: ATRIAL FIBRILLATION
  3. ATENOLOL [Concomitant]
  4. LASIX [Concomitant]
  5. KLOR-CON [Concomitant]
  6. ASPIRIN [Concomitant]
  7. AMIODARONE [Concomitant]
  8. RANITIDINE [Concomitant]
     Indication: DYSPEPSIA
  9. NORCO [Concomitant]

REACTIONS (2)
  - Gastrointestinal haemorrhage [Unknown]
  - Rectal haemorrhage [Unknown]
